FAERS Safety Report 5952832-6 (Version None)
Quarter: 2008Q4

REPORT INFORMATION
  Report Type: 
  Country: None (occurrence: None)
  Receive Date: 20081114
  Receipt Date: 20081105
  Transmission Date: 20090506
  Serious: Yes (Death, Other)
  Sender: FDA-Public Use
  Company Number: US-JNJFOC-20081004783

PATIENT
  Sex: Male

DRUGS (3)
  1. REMICADE [Suspect]
     Route: 042
  2. REMICADE [Suspect]
     Indication: RHEUMATOID ARTHRITIS
     Route: 042
  3. REVLIMID [Concomitant]
     Indication: MYELODYSPLASTIC SYNDROME

REACTIONS (3)
  - PNEUMONIA [None]
  - SEPSIS [None]
  - TRANSFUSION [None]
